FAERS Safety Report 21402001 (Version 1)
Quarter: 2022Q4

REPORT INFORMATION
  Report Type: Report from Study
  Country: DE (occurrence: DE)
  Receive Date: 20221003
  Receipt Date: 20221003
  Transmission Date: 20230113
  Serious: Yes (Other)
  Sender: FDA-Public Use
  Company Number: None

PATIENT
  Age: 82 Year
  Sex: Female
  Weight: 71.9 kg

DRUGS (6)
  1. PACLITAXEL [Suspect]
     Active Substance: PACLITAXEL
     Indication: Breast cancer
     Dosage: DATE OF LAST ADMINISTRATION PRIOR EVENT: 26/MAR/2021 DATE OF LAST PRIOR EVENT?09/APR/2021 140.8 MG
     Dates: start: 20210108, end: 20210409
  2. TRASTUZUMAB [Suspect]
     Active Substance: TRASTUZUMAB
     Indication: Breast cancer
     Dosage: DATE OF LAST ADMINISTRATION PRIOR EVENT: 26/MAR/2021
     Dates: start: 20210108
  3. PERTUZUMAB [Suspect]
     Active Substance: PERTUZUMAB
     Indication: Breast cancer
     Dosage: DATE OF LAST ADMINISTRATION PRIOR EVENT: 26/MAR/2021, 30/APR/2021
     Dates: start: 20210108
  4. PERTUZUMAB [Suspect]
     Active Substance: PERTUZUMAB
     Indication: Breast cancer
     Dosage: DATE OF LAST ADMINISTARTION PRIOR EVENT
     Dates: start: 20210129, end: 20220718
  5. TRASTUZUMAB [Suspect]
     Active Substance: TRASTUZUMAB
     Indication: Breast cancer
     Dosage: DATE OF LAST ADMINISTRATION PRIOR EVENT: 06/AUG/2021, 01/APR/2021 LAST DOSE OF?PRIOR EVENT 409.2 MG
     Dates: start: 20210129
  6. TRASTUZUMAB [Suspect]
     Active Substance: TRASTUZUMAB
     Indication: Breast cancer
     Dosage: DATE OF LAST PRIOR EVENT 06/AUG/2021 LAST DOSE OF PRIOR EVENT 409.2
     Dates: start: 20210715, end: 20220718

REACTIONS (4)
  - Eye inflammation [Unknown]
  - Oedema peripheral [Not Recovered/Not Resolved]
  - Polyneuropathy [Not Recovered/Not Resolved]
  - Dysgeusia [Not Recovered/Not Resolved]

NARRATIVE: CASE EVENT DATE: 20210401
